FAERS Safety Report 24601696 (Version 1)
Quarter: 2024Q4

REPORT INFORMATION
  Report Type: Spontaneous
  Country: US (occurrence: US)
  Receive Date: 20241111
  Receipt Date: 20241111
  Transmission Date: 20250115
  Serious: Yes (Hospitalization, Other)
  Sender: APOTEX
  Company Number: US-APOTEX-2024AP017353

PATIENT
  Age: 71 Year
  Sex: Female

DRUGS (2)
  1. ACYCLOVIR [Suspect]
     Active Substance: ACYCLOVIR
     Indication: Keratitis
     Dosage: 200 MILLIGRAM, BID
     Route: 065
  2. VALACYCLOVIR [Suspect]
     Active Substance: VALACYCLOVIR HYDROCHLORIDE
     Indication: Keratitis
     Dosage: 1000 MILLIGRAM, TID
     Route: 065

REACTIONS (9)
  - Neurotoxicity [Recovered/Resolved]
  - Hallucination, auditory [Recovered/Resolved]
  - Hyporeflexia [Recovered/Resolved]
  - Myoclonus [Recovered/Resolved]
  - Nystagmus [Recovered/Resolved]
  - Mental status changes [Recovered/Resolved]
  - Delirium [Recovered/Resolved]
  - Asthenia [Recovered/Resolved]
  - Dysarthria [Recovered/Resolved]
